FAERS Safety Report 12884029 (Version 3)
Quarter: 2017Q2

REPORT INFORMATION
  Report Type: Spontaneous
  Country: US (occurrence: US)
  Receive Date: 20161026
  Receipt Date: 20170421
  Transmission Date: 20170830
  Serious: Yes (Death, Other)
  Sender: FDA-Public Use
  Company Number: US-PFIZER INC-2016496582

PATIENT
  Age: 77 Year
  Sex: Male
  Weight: 79 kg

DRUGS (2)
  1. REVATIO [Concomitant]
     Active Substance: SILDENAFIL CITRATE
     Indication: PULMONARY HYPERTENSION
     Dosage: 20 MG, UNK
  2. GABAPENTIN. [Suspect]
     Active Substance: GABAPENTIN
     Indication: DIABETIC NEUROPATHY
     Dosage: 300 MG, 3X/DAY (EVERY EIGHT HOURS)

REACTIONS (6)
  - Gait disturbance [Unknown]
  - Death [Fatal]
  - Pain [Recovered/Resolved]
  - Pain in extremity [Recovered/Resolved]
  - Product use in unapproved indication [Unknown]
  - Burning sensation [Recovered/Resolved]
